FAERS Safety Report 5992957-2 (Version None)
Quarter: 2008Q4

REPORT INFORMATION
  Report Type: 
  Country: None (occurrence: None)
  Receive Date: 20081210
  Receipt Date: 20081210
  Transmission Date: 20090506
  Serious: Yes (Life-Threatening, Other)
  Sender: FDA-Public Use
  Company Number: None

PATIENT
  Age: 14 Year
  Sex: Male
  Weight: 81.6475 kg

DRUGS (2)
  1. ROPINIROLE [Suspect]
     Indication: ATTENTION DEFICIT/HYPERACTIVITY DISORDER
     Dosage: 1 MG 3X DAY PO
     Route: 048
     Dates: start: 20081027, end: 20081208
  2. ROPINIROLE [Suspect]
     Indication: AUTISM
     Dosage: 1 MG 3X DAY PO
     Route: 048
     Dates: start: 20081027, end: 20081208

REACTIONS (5)
  - CARDIAC VALVE DISEASE [None]
  - DRUG DISPENSING ERROR [None]
  - ELECTROCARDIOGRAM ABNORMAL [None]
  - MEDICATION ERROR [None]
  - WRONG DRUG ADMINISTERED [None]
